FAERS Safety Report 14757851 (Version 2)
Quarter: 2020Q2

REPORT INFORMATION
  Report Type: Spontaneous
  Country: US (occurrence: US)
  Receive Date: 20180413
  Receipt Date: 20200515
  Transmission Date: 20200713
  Serious: Yes (Hospitalization, Other)
  Sender: FDA-Public Use
  Company Number: US-ASTRAZENECA-2018SE45182

PATIENT
  Age: 23919 Day
  Sex: Male
  Weight: 150.5 kg

DRUGS (27)
  1. METFORMIN [Concomitant]
     Active Substance: METFORMIN HYDROCHLORIDE
     Dates: start: 20120307
  2. CLINDAMYCIN. [Concomitant]
     Active Substance: CLINDAMYCIN
     Dates: start: 20130301
  3. NOVOLOG [Concomitant]
     Active Substance: INSULIN ASPART
     Dates: start: 20130405
  4. ELIQUIS [Concomitant]
     Active Substance: APIXABAN
     Dates: start: 20170103
  5. CELEBREX [Concomitant]
     Active Substance: CELECOXIB
     Dates: start: 20120202
  6. FUROSEMIDE. [Concomitant]
     Active Substance: FUROSEMIDE
     Dates: start: 20121218
  7. COLCRYS [Concomitant]
     Active Substance: COLCHICINE
     Dates: start: 20131212
  8. PREDNISONE. [Concomitant]
     Active Substance: PREDNISONE
     Dates: start: 20130102
  9. AZITHROMYCIN ANHYDROUS. [Concomitant]
     Active Substance: AZITHROMYCIN ANHYDROUS
     Dates: start: 20171023
  10. AMOX/K CLAV [Concomitant]
     Active Substance: AMOXICILLIN\CLAVULANATE POTASSIUM
     Dates: start: 20121001
  11. EDECRIN [Concomitant]
     Active Substance: ETHACRYNIC ACID
     Dates: start: 20130218
  12. LOVASTATIN. [Concomitant]
     Active Substance: LOVASTATIN
     Dates: start: 20130121
  13. ALLOPURINOL. [Concomitant]
     Active Substance: ALLOPURINOL
     Dates: start: 20130218
  14. BYETTA [Concomitant]
     Active Substance: EXENATIDE
     Dates: start: 20130315
  15. ONGLYZA [Suspect]
     Active Substance: SAXAGLIPTIN HYDROCHLORIDE
     Indication: DIABETES MELLITUS
     Route: 048
     Dates: start: 20120509, end: 20130218
  16. WARFARIN [Concomitant]
     Active Substance: WARFARIN
     Dates: start: 20130218
  17. SPIRONOLACTONE. [Concomitant]
     Active Substance: SPIRONOLACTONE
     Dates: start: 20130102
  18. ONGLYZA [Suspect]
     Active Substance: SAXAGLIPTIN HYDROCHLORIDE
     Indication: DIABETES MELLITUS
     Route: 048
     Dates: start: 20120509
  19. HYDROCODONE BITARTRATE AND ACETAMINOPHEN [Concomitant]
     Active Substance: ACETAMINOPHEN\HYDROCODONE BITARTRATE
     Dates: start: 20120312
  20. BUMETANIDE. [Concomitant]
     Active Substance: BUMETANIDE
     Dates: start: 20130112
  21. LISINOPRIL. [Concomitant]
     Active Substance: LISINOPRIL
     Dates: start: 20130415
  22. METOPROLOL. [Concomitant]
     Active Substance: METOPROLOL
     Dates: start: 20130218
  23. KOMBIGLYZE XR [Suspect]
     Active Substance: METFORMIN HYDROCHLORIDE\SAXAGLIPTIN HYDROCHLORIDE
     Route: 048
     Dates: start: 2010, end: 2012
  24. ONGLYZA [Suspect]
     Active Substance: SAXAGLIPTIN HYDROCHLORIDE
     Indication: DIABETES MELLITUS
     Route: 048
     Dates: start: 2010, end: 2012
  25. PHENTERMINE. [Concomitant]
     Active Substance: PHENTERMINE
     Dates: start: 20120213
  26. GLIMEPIRIDE. [Concomitant]
     Active Substance: GLIMEPIRIDE
     Dates: start: 20120402
  27. VITAMIN D2 [Concomitant]
     Active Substance: ERGOCALCIFEROL
     Dates: start: 20131211

REACTIONS (5)
  - Acute left ventricular failure [Unknown]
  - Cardiac failure [Unknown]
  - Chronic left ventricular failure [Unknown]
  - Cardiac failure congestive [Unknown]
  - Cardiovascular disorder [Unknown]

NARRATIVE: CASE EVENT DATE: 20121226
